FAERS Safety Report 6192908-4 (Version None)
Quarter: 2009Q2

REPORT INFORMATION
  Report Type: 
  Country: None (occurrence: None)
  Receive Date: 20090518
  Receipt Date: 20090504
  Transmission Date: 20091009
  Serious: Yes (Hospitalization, Other)
  Sender: FDA-Public Use
  Company Number: DK-ELI_LILLY_AND_COMPANY-DK200904000274

PATIENT
  Age: 15 Year
  Sex: Female
  Weight: 44 kg

DRUGS (4)
  1. STRATTERA [Suspect]
     Indication: ATTENTION DEFICIT/HYPERACTIVITY DISORDER
     Dosage: 25 MG, UNKNOWN
     Route: 065
     Dates: start: 20081212, end: 20081201
  2. STRATTERA [Suspect]
     Dosage: 25 MG, 2/D
     Route: 065
     Dates: end: 20090101
  3. STRATTERA [Suspect]
     Dosage: 60 MG, UNKNOWN
     Route: 065
     Dates: start: 20090101, end: 20090311
  4. FONTEX [Suspect]
     Indication: DEPRESSION
     Dosage: 20 MG, UNKNOWN
     Route: 065
     Dates: start: 20080201

REACTIONS (4)
  - DRUG TOXICITY [None]
  - DYSPNOEA [None]
  - NAUSEA [None]
  - SINUS TACHYCARDIA [None]
